FAERS Safety Report 6394013-0 (Version None)
Quarter: 2009Q4

REPORT INFORMATION
  Report Type: 
  Country: None (occurrence: None)
  Receive Date: 20091008
  Receipt Date: 20090928
  Transmission Date: 20100525
  Serious: Yes (Other)
  Sender: FDA-Public Use
  Company Number: PHHY2009IE30784

PATIENT
  Sex: Female

DRUGS (3)
  1. CLOZARIL [Suspect]
     Indication: SCHIZOPHRENIA
     Dosage: 300 MG DAILY
     Route: 048
     Dates: start: 20090505, end: 20090720
  2. CLOZARIL [Suspect]
     Indication: SCHIZOAFFECTIVE DISORDER
  3. AMITRIPTYLINE [Concomitant]
     Indication: DEPRESSION
     Dosage: 175MG DAILY
     Route: 048
     Dates: start: 20090601

REACTIONS (4)
  - NEUTROPENIA [None]
  - PHARYNGITIS [None]
  - SALIVARY HYPERSECRETION [None]
  - TACHYCARDIA [None]
